FAERS Safety Report 4899118-9 (Version None)
Quarter: 2006Q1

REPORT INFORMATION
  Report Type: 
  Country: None (occurrence: None)
  Receive Date: 20060202
  Receipt Date: 20060123
  Transmission Date: 20060701
  Serious: Yes (Hospitalization, Other)
  Sender: FDA-Public Use
  Company Number: US-AVENTIS-200610865US

PATIENT
  Sex: Male
  Weight: 113.63 kg

DRUGS (6)
  1. KETEK [Suspect]
     Indication: UPPER RESPIRATORY TRACT INFECTION
     Dosage: DOSE: UNK
     Dates: start: 20050501
  2. PROCARDIA XL [Concomitant]
     Dosage: DOSE: UNKNOWN
  3. CLONIDINE [Concomitant]
     Dosage: DOSE: UNKNOWN
  4. PROZAC [Concomitant]
     Dosage: DOSE: UNKNOWN
  5. ASCORBIC ACID [Concomitant]
     Dosage: DOSE: UNKNOWN
  6. TRAVATAN [Concomitant]
     Dosage: DOSE: UNKNOWN
     Route: 047

REACTIONS (4)
  - ARTERIAL OCCLUSIVE DISEASE [None]
  - DIPLOPIA [None]
  - DYSPNOEA [None]
  - UPPER RESPIRATORY TRACT INFECTION [None]
